FAERS Safety Report 13382657 (Version 2)
Quarter: 2017Q2

REPORT INFORMATION
  Report Type: Spontaneous
  Country: None (occurrence: US)
  Receive Date: 20170329
  Receipt Date: 20170413
  Transmission Date: 20170830
  Serious: No
  Sender: FDA-Public Use
  Company Number: US-MEDAC PHARMA, INC.-1064776

PATIENT
  Sex: Female

DRUGS (1)
  1. RASUVO [Suspect]
     Active Substance: METHOTREXATE SODIUM
     Dates: start: 201702

REACTIONS (4)
  - Wrong technique in product usage process [Recovered/Resolved]
  - Exposure via skin contact [Recovered/Resolved]
  - No adverse event [None]
  - Accidental exposure to product [Recovered/Resolved]
